FAERS Safety Report 5652697-6 (Version None)
Quarter: 2008Q1

REPORT INFORMATION
  Report Type: 
  Country: None (occurrence: None)
  Receive Date: 20080305
  Receipt Date: 20080305
  Transmission Date: 20080703
  Serious: Yes (Hospitalization)
  Sender: FDA-Public Use
  Company Number: None

PATIENT
  Sex: Male
  Weight: 44.9061 kg

DRUGS (15)
  1. ZELNORM [Suspect]
     Indication: MOBILITY DECREASED
     Dosage: 6 MG  BID  G-TUBE
     Dates: start: 20070501
  2. LEVETIRACETAM [Concomitant]
  3. LORAZEPAM [Concomitant]
  4. TIAGABINE HCL [Concomitant]
  5. PHENYTOIN [Concomitant]
  6. MEMANTINE HCL [Concomitant]
  7. THIAMINE [Concomitant]
  8. DICHLORACITATE [Concomitant]
  9. LANSOPRAZOLE [Concomitant]
  10. PEPTAMEN [Concomitant]
  11. COQ-10 [Concomitant]
  12. ALPHA-LIPOIC ACID [Concomitant]
  13. CREATININE [Concomitant]
  14. ALBUTEROL SULFATE [Concomitant]
  15. MULTI-DAY VITAMIN [Concomitant]

REACTIONS (5)
  - CONDITION AGGRAVATED [None]
  - CONVULSION [None]
  - INFLUENZA [None]
  - MELAS SYNDROME [None]
  - VOMITING [None]
